FAERS Safety Report 8048397-8 (Version None)
Quarter: 2012Q1

REPORT INFORMATION
  Report Type: 
  Country: None (occurrence: None)
  Receive Date: 20120117
  Receipt Date: 20120111
  Transmission Date: 20120608
  Serious: Yes (Hospitalization, Other)
  Sender: FDA-Public Use
  Company Number: US-PFIZER INC-2011261243

PATIENT
  Sex: Female

DRUGS (3)
  1. FLEXERIL [Concomitant]
     Indication: PAIN
     Dosage: UNK
     Dates: start: 20000101
  2. FLEXERIL [Concomitant]
     Indication: MUSCLE SPASMS
  3. CHANTIX [Suspect]
     Indication: SMOKING CESSATION THERAPY
     Dosage: 0.5 MG/1MG
     Dates: start: 20081101, end: 20081101

REACTIONS (8)
  - NIGHTMARE [None]
  - IRRITABILITY [None]
  - INTENTIONAL OVERDOSE [None]
  - DEPRESSION [None]
  - MOOD SWINGS [None]
  - SUICIDE ATTEMPT [None]
  - WEIGHT DECREASED [None]
  - ANXIETY [None]
